FAERS Safety Report 21442975 (Version 6)
Quarter: 2022Q4

REPORT INFORMATION
  Report Type: Spontaneous
  Country: US (occurrence: US)
  Receive Date: 20221012
  Receipt Date: 20221123
  Transmission Date: 20230112
  Serious: No
  Sender: FDA-Public Use
  Company Number: US-NOVARTISTESTPH-NVSC2022US229460

PATIENT
  Age: 55 Year
  Sex: Female

DRUGS (4)
  1. COMBIPATCH [Suspect]
     Active Substance: ESTRADIOL\NORETHINDRONE ACETATE
     Indication: Hot flush
     Dosage: UNK 0.05/0.14 MG, 2/WEEK MONDAY AND THURSDAY
     Route: 062
     Dates: start: 202205, end: 20220726
  2. COMBIPATCH [Suspect]
     Active Substance: ESTRADIOL\NORETHINDRONE ACETATE
     Indication: Sleep disorder
     Dosage: UNK 0.05/0.25 MG, 2/WEEKS, MONDAY AND THURSDAY
     Route: 062
     Dates: start: 20220727, end: 202209
  3. COMBIPATCH [Suspect]
     Active Substance: ESTRADIOL\NORETHINDRONE ACETATE
     Dosage: UNK 0.05/0.14 MG, 2/WEEK MONDAY AND THURSDAY
     Route: 062
     Dates: start: 202209
  4. COMBIPATCH [Suspect]
     Active Substance: ESTRADIOL\NORETHINDRONE ACETATE
     Dosage: UNK, 0.05/0.14 MG, 2/WEEK (MONDAYS AND THURSDAYS)
     Route: 062
     Dates: start: 2022

REACTIONS (8)
  - Irritability [Unknown]
  - Application site pain [Not Recovered/Not Resolved]
  - Application site inflammation [Not Recovered/Not Resolved]
  - Application site reaction [Not Recovered/Not Resolved]
  - Application site pruritus [Not Recovered/Not Resolved]
  - Application site vesicles [Unknown]
  - Application site exfoliation [Not Recovered/Not Resolved]
  - Therapeutic product ineffective [Unknown]

NARRATIVE: CASE EVENT DATE: 20220101
